FAERS Safety Report 25788398 (Version 2)
Quarter: 2025Q3

REPORT INFORMATION
  Report Type: Spontaneous
  Country: EU (occurrence: EU)
  Receive Date: 20250910
  Receipt Date: 20250916
  Transmission Date: 20251021
  Serious: Yes (Death, Hospitalization, Other)
  Sender: PFIZER
  Company Number: None

PATIENT
  Age: 76 Year
  Sex: Female

DRUGS (1)
  1. METHOTREXATE [Suspect]
     Active Substance: METHOTREXATE
     Indication: Hydrometra
     Route: 015
     Dates: start: 20220603, end: 20220603

REACTIONS (7)
  - Sepsis [Fatal]
  - Cerebral infarction [Fatal]
  - Pancytopenia [Fatal]
  - Myelosuppression [Fatal]
  - Depressed level of consciousness [Not Recovered/Not Resolved]
  - Off label use [Unknown]
  - Off label use [Unknown]

NARRATIVE: CASE EVENT DATE: 20220601
